FAERS Safety Report 24572589 (Version 2)
Quarter: 2024Q4

REPORT INFORMATION
  Report Type: Report from Study
  Country: ZA (occurrence: ZA)
  Receive Date: 20241101
  Receipt Date: 20241128
  Transmission Date: 20250115
  Serious: Yes (Death, Other)
  Sender: ALEXION PHARMACEUTICALS
  Company Number: ZA-AstraZeneca-CH-00728641A

PATIENT
  Age: 48 Year

DRUGS (22)
  1. DAPAGLIFLOZIN [Suspect]
     Active Substance: DAPAGLIFLOZIN
     Indication: Diabetes mellitus
     Dosage: 10 MILLIGRAM
  2. DAPAGLIFLOZIN [Suspect]
     Active Substance: DAPAGLIFLOZIN
     Dosage: 10 MILLIGRAM
  3. DAPAGLIFLOZIN [Suspect]
     Active Substance: DAPAGLIFLOZIN
     Dosage: 10 MILLIGRAM
  4. DAPAGLIFLOZIN [Suspect]
     Active Substance: DAPAGLIFLOZIN
     Dosage: 10 MILLIGRAM
  5. GRANICIP [Concomitant]
     Dosage: 2 MILLIGRAM
  6. GRANICIP [Concomitant]
     Dosage: 2 MILLIGRAM
  7. METOCLOPRAMIDE HYDROCHLORIDE [Concomitant]
     Active Substance: METOCLOPRAMIDE HYDROCHLORIDE
     Dosage: 10 MILLIGRAM
  8. METOCLOPRAMIDE HYDROCHLORIDE [Concomitant]
     Active Substance: METOCLOPRAMIDE HYDROCHLORIDE
     Dosage: 10 MILLIGRAM
  9. MESNA [Concomitant]
     Active Substance: MESNA
     Dosage: 100 MILLIGRAM
  10. MESNA [Concomitant]
     Active Substance: MESNA
     Dosage: 100 MILLIGRAM
  11. MESNA [Concomitant]
     Active Substance: MESNA
  12. MESNA [Concomitant]
     Active Substance: MESNA
  13. Cipla fluconazole [Concomitant]
     Dosage: 50 MILLIGRAM
  14. Cipla fluconazole [Concomitant]
     Dosage: 50 MILLIGRAM
  15. ALLOPURINOL [Concomitant]
     Active Substance: ALLOPURINOL
     Dosage: 300 MILLIGRAM
  16. ALLOPURINOL [Concomitant]
     Active Substance: ALLOPURINOL
     Dosage: 300 MILLIGRAM
  17. Dis chem paracetamol [Concomitant]
     Dosage: 500 MILLIGRAM
  18. Dis chem paracetamol [Concomitant]
     Dosage: 500 MILLIGRAM
  19. Acitab [Concomitant]
     Dosage: 200 MILLIGRAM
  20. Acitab [Concomitant]
     Dosage: 200 MILLIGRAM
  21. SULFAMETHOXAZOLE\TRIMETHOPRIM [Concomitant]
     Active Substance: SULFAMETHOXAZOLE\TRIMETHOPRIM
     Indication: Acne
     Dosage: 480 MILLIGRAM
  22. SULFAMETHOXAZOLE\TRIMETHOPRIM [Concomitant]
     Active Substance: SULFAMETHOXAZOLE\TRIMETHOPRIM
     Dosage: 480 MILLIGRAM

REACTIONS (1)
  - Neoplasm malignant [Fatal]
